FAERS Safety Report 13440389 (Version 1)
Quarter: 2017Q2

REPORT INFORMATION
  Report Type: Spontaneous
  Country: BG (occurrence: BG)
  Receive Date: 20170413
  Receipt Date: 20170413
  Transmission Date: 20170830
  Serious: Yes (Hospitalization)
  Sender: FDA-Public Use
  Company Number: BG-ASTRAZENECA-2017SE38123

PATIENT
  Age: 22102 Day
  Sex: Male

DRUGS (6)
  1. ASPIRIN PROTECT [Concomitant]
     Active Substance: ASPIRIN
     Dosage: 100 MG DAILY
  2. ISODINIT [Concomitant]
     Dosage: 2X20 MG DAILY
  3. CORLENTOR [Concomitant]
     Active Substance: IVABRADINE HYDROCHLORIDE
     Dosage: 2X7.5 MG DAILY
  4. CONCOR [Concomitant]
     Active Substance: BISOPROLOL FUMARATE
     Dosage: 5 MG DAILY
  5. BRILIQUE [Suspect]
     Active Substance: TICAGRELOR
     Route: 048
     Dates: start: 20160518
  6. PRESTARIUM [Concomitant]
     Active Substance: PERINDOPRIL
     Dosage: 10 MG DAILY

REACTIONS (1)
  - Acute coronary syndrome [Unknown]

NARRATIVE: CASE EVENT DATE: 20161030
